FAERS Safety Report 14145539 (Version 2)
Quarter: 2018Q1

REPORT INFORMATION
  Report Type: Report from Study
  Country: BR (occurrence: BR)
  Receive Date: 20171031
  Receipt Date: 20180202
  Transmission Date: 20180508
  Serious: Yes (Death, Hospitalization)
  Sender: FDA-Public Use
  Company Number: BR-ACTELION-A-CH2017-161784

PATIENT
  Age: 3 Year
  Sex: Male

DRUGS (1)
  1. ZAVESCA [Suspect]
     Active Substance: MIGLUSTAT
     Indication: NIEMANN-PICK DISEASE
     Dosage: UNK
     Route: 048
     Dates: start: 20150720, end: 20171005

REACTIONS (9)
  - Oxygen saturation decreased [Fatal]
  - Cough [Fatal]
  - Vomiting [Fatal]
  - Gait disturbance [Unknown]
  - Aspiration [Fatal]
  - Drug intolerance [Fatal]
  - Niemann-Pick disease [Fatal]
  - Disease progression [Fatal]
  - Concomitant disease aggravated [Unknown]

NARRATIVE: CASE EVENT DATE: 2017
